FAERS Safety Report 9300806 (Version 2)
Quarter: 2013Q2

REPORT INFORMATION
  Report Type: Spontaneous
  Country: US (occurrence: US)
  Receive Date: 20130521
  Receipt Date: 20130524
  Transmission Date: 20140414
  Serious: Yes (Other)
  Sender: FDA-Public Use
  Company Number: CHPA2013US008404

PATIENT
  Age: 68 Year
  Sex: Female

DRUGS (3)
  1. VOLTAREN GEL [Suspect]
     Indication: RHEUMATOID ARTHRITIS
     Dosage: UNK, 3 OR 4 X A DAY AS NEEDED
     Route: 061
  2. METHOTREXATE [Concomitant]
     Indication: RHEUMATOID ARTHRITIS
     Dosage: 0.5 ML, QW
  3. PREDNISONE [Concomitant]
     Indication: INFLAMMATION
     Dosage: 5 MG, BID PRN

REACTIONS (6)
  - Rheumatoid arthritis [Recovering/Resolving]
  - Concomitant disease aggravated [Recovering/Resolving]
  - Off label use [Unknown]
  - Therapeutic response unexpected [Recovering/Resolving]
  - Drug dispensing error [Unknown]
  - Wrong technique in drug usage process [Unknown]
